FAERS Safety Report 6946084-8 (Version None)
Quarter: 2010Q3

REPORT INFORMATION
  Report Type: 
  Country: None (occurrence: None)
  Receive Date: 20100827
  Receipt Date: 20100825
  Transmission Date: 20110219
  Serious: Yes (Other)
  Sender: FDA-Public Use
  Company Number: US-PFIZER INC-2010079805

PATIENT
  Sex: Female
  Weight: 80.726 kg

DRUGS (5)
  1. NEURONTIN [Suspect]
     Indication: NECK PAIN
     Dosage: 800 MG, DAILY
     Route: 048
     Dates: start: 20100618, end: 20100618
  2. NEURONTIN [Suspect]
     Indication: MUSCULOSKELETAL PAIN
  3. NEURONTIN [Suspect]
     Indication: PAIN IN EXTREMITY
  4. PRAVASTATIN [Concomitant]
     Indication: BLOOD CHOLESTEROL INCREASED
  5. DICLOFENAC [Concomitant]
     Indication: PAIN IN EXTREMITY

REACTIONS (2)
  - ACTIVITIES OF DAILY LIVING IMPAIRED [None]
  - DYSSTASIA [None]
